FAERS Safety Report 11757304 (Version 1)
Quarter: 2015Q4

REPORT INFORMATION
  Report Type: Spontaneous
  Country: PL (occurrence: PL)
  Receive Date: 20151120
  Receipt Date: 20151120
  Transmission Date: 20160304
  Serious: Yes (Other)
  Sender: FDA-Public Use
  Company Number: PL-BAYER-2015-458026

PATIENT
  Age: 38 Year
  Sex: Female

DRUGS (1)
  1. ACETYLSALICYLIC ACID (} 100 MG) [Suspect]
     Active Substance: ASPIRIN

REACTIONS (6)
  - Anaphylactic shock [None]
  - Dyspnoea [None]
  - Angioedema [None]
  - Urticaria [None]
  - Blood pressure decreased [None]
  - Pruritus generalised [None]
